FAERS Safety Report 23330360 (Version 1)
Quarter: 2023Q4

REPORT INFORMATION
  Report Type: Spontaneous
  Country: US (occurrence: None)
  Receive Date: 20231222
  Receipt Date: 20231222
  Transmission Date: 20240109
  Serious: Yes (Other)
  Sender: FDA-Public Use
  Company Number: US-ROCHE-3478609

PATIENT
  Age: 65 Year
  Sex: Female

DRUGS (10)
  1. AVASTIN [Suspect]
     Active Substance: BEVACIZUMAB
     Indication: Diabetic retinopathy
     Dosage: 0.05%
     Route: 047
  2. AVASTIN [Suspect]
     Active Substance: BEVACIZUMAB
     Indication: Macular oedema
  3. GLIPIZIDE [Concomitant]
     Active Substance: GLIPIZIDE
  4. LOSARTAN [Concomitant]
     Active Substance: LOSARTAN
  5. OZEMPIC [Concomitant]
     Active Substance: SEMAGLUTIDE
  6. PANTOPRAZOLE [Concomitant]
     Active Substance: PANTOPRAZOLE
  7. PRIMIDONE [Concomitant]
     Active Substance: PRIMIDONE
  8. PROPRANOLOL [Concomitant]
     Active Substance: PROPRANOLOL HYDROCHLORIDE
  9. BRIMONIDINE [Concomitant]
     Active Substance: BRIMONIDINE TARTRATE
     Route: 047
  10. TIMOLOL [Concomitant]
     Active Substance: TIMOLOL

REACTIONS (2)
  - Endophthalmitis [Recovering/Resolving]
  - Off label use [Unknown]

NARRATIVE: CASE EVENT DATE: 20231213
